FAERS Safety Report 5095524-0 (Version None)
Quarter: 2006Q3

REPORT INFORMATION
  Report Type: 
  Country: None (occurrence: None)
  Receive Date: 20060831
  Receipt Date: 20060831
  Transmission Date: 20061208
  Serious: Yes (Death, Hospitalization)
  Sender: FDA-Public Use
  Company Number: None

PATIENT
  Age: 70 Year
  Sex: Male
  Weight: 92.5338 kg

DRUGS (9)
  1. AMIODARONE HCL [Suspect]
     Indication: ATRIAL FIBRILLATION
     Dosage: 75 MG IV X 1
     Route: 042
     Dates: start: 20060311
  2. LOPID [Concomitant]
  3. ALLOPURINOL [Concomitant]
  4. FUROSEMIDE [Concomitant]
  5. COZAAR [Concomitant]
  6. EROTRIN [Concomitant]
  7. VITAMIN [Concomitant]
  8. HEPARIN [Concomitant]
  9. SODIUM BICARB [Concomitant]

REACTIONS (3)
  - POST PROCEDURAL COMPLICATION [None]
  - PROCEDURAL HYPOTENSION [None]
  - PULMONARY OEDEMA [None]
